FAERS Safety Report 7500959-X (Version None)
Quarter: 2011Q2

REPORT INFORMATION
  Report Type: 
  Country: None (occurrence: None)
  Receive Date: 20110524
  Receipt Date: 20110518
  Transmission Date: 20111010
  Serious: Yes (Death, Hospitalization, Other)
  Sender: FDA-Public Use
  Company Number: JP-CEPHALON-2011002518

PATIENT
  Sex: Male
  Weight: 48 kg

DRUGS (11)
  1. SULFAMETHOXAZOLE AND TRIMETHOPRIM [Concomitant]
  2. ALLOPURINOL [Concomitant]
  3. FLUCONAZOLE [Concomitant]
  4. BROTIZOLAM [Concomitant]
  5. BENDAMUSTINE HCL [Suspect]
     Indication: B-CELL LYMPHOMA
     Route: 042
     Dates: start: 20110117, end: 20110118
  6. ACYCLOVIR [Concomitant]
  7. PALONOSETRON HYDROCHLORIDE [Concomitant]
     Dates: start: 20110117, end: 20110207
  8. DEXAMETHASONE [Concomitant]
  9. LAFUTIDINE [Concomitant]
  10. BENDAMUSTINE HCL [Suspect]
     Route: 042
     Dates: start: 20110207, end: 20110208
  11. DEXAMETHASONE SODIUM PHOSPHATE [Concomitant]
     Dates: start: 20110117, end: 20110209

REACTIONS (4)
  - STOMATITIS [None]
  - ANAL ABSCESS [None]
  - NEUTROPHIL COUNT DECREASED [None]
  - HAEMORRHOIDS [None]
